FAERS Safety Report 6581385-7 (Version None)
Quarter: 2010Q1

REPORT INFORMATION
  Report Type: 
  Country: None (occurrence: None)
  Receive Date: 20100215
  Receipt Date: 20100203
  Transmission Date: 20100710
  Serious: Yes (Other)
  Sender: FDA-Public Use
  Company Number: US-JNJFOC-20100102394

PATIENT
  Age: 82 Year
  Sex: Female
  Weight: 52.16 kg

DRUGS (8)
  1. TYLENOL ARTHRITIS PAIN ER [Suspect]
     Indication: ARTHRITIS
     Dosage: TAKING 1-2 TIMES A DAY
     Route: 048
  2. TYLENOL ARTHRITIS PAIN ER [Suspect]
     Route: 048
  3. ALEVE (CAPLET) [Concomitant]
     Indication: ARTHRITIS
  4. ALEVE (CAPLET) [Concomitant]
  5. CALTRATE [Concomitant]
     Indication: MINERAL SUPPLEMENTATION
     Dosage: ONE IN AM, TWO IN PM
  6. MULTI-VITAMINS [Concomitant]
  7. ENALAPRIL MALEATE [Concomitant]
     Indication: HYPERTENSION
  8. DILTIAZEM HCL [Concomitant]
     Indication: HYPERTENSION

REACTIONS (5)
  - ABDOMINAL PAIN UPPER [None]
  - HAEMATEMESIS [None]
  - HAEMATOCHEZIA [None]
  - PAIN [None]
  - PRODUCT QUALITY ISSUE [None]
